FAERS Safety Report 5134999-5 (Version None)
Quarter: 2006Q4

REPORT INFORMATION
  Report Type: 
  Country: None (occurrence: None)
  Receive Date: 20060831
  Receipt Date: 20060614
  Transmission Date: 20070319
  Serious: No
  Sender: FDA-Public Use
  Company Number: 2006-BP-01494BP

PATIENT
  Age: 83 Year
  Sex: Female

DRUGS (9)
  1. SPIRIVA [Suspect]
     Indication: CHRONIC OBSTRUCTIVE PULMONARY DISEASE
     Dosage: 18 MCG (18 MCG),IH
     Route: 055
  2. SPIRIVA [Suspect]
  3. ALBUTEROL [Concomitant]
  4. HYZAAR [Concomitant]
  5. PLAVIX [Concomitant]
  6. EVISTA [Concomitant]
  7. METOPRALOL [Concomitant]
  8. AMBIEN [Concomitant]
  9. ASPIRIN [Concomitant]

REACTIONS (2)
  - CONSTIPATION [None]
  - NAUSEA [None]
